FAERS Safety Report 10503699 (Version 2)
Quarter: 2014Q4

REPORT INFORMATION
  Report Type: Report from Study
  Country: RU (occurrence: RU)
  Receive Date: 20141008
  Receipt Date: 20141031
  Transmission Date: 20150528
  Serious: Yes (Disabling, Other)
  Sender: FDA-Public Use
  Company Number: PHHY2014RU129538

PATIENT
  Age: 83 Year
  Sex: Female

DRUGS (1)
  1. ACLASTA [Suspect]
     Active Substance: ZOLEDRONIC ACID
     Indication: OSTEOPOROSIS
     Route: 042
     Dates: start: 20140506

REACTIONS (2)
  - Fall [Unknown]
  - Hand fracture [Recovered/Resolved with Sequelae]

NARRATIVE: CASE EVENT DATE: 20140916
